FAERS Safety Report 4909041-9 (Version None)
Quarter: 2006Q1

REPORT INFORMATION
  Report Type: 
  Country: None (occurrence: None)
  Receive Date: 20060213
  Receipt Date: 20060201
  Transmission Date: 20060701
  Serious: Yes (Other)
  Sender: FDA-Public Use
  Company Number: PHEH2006US01721

PATIENT
  Age: 70 Year
  Sex: Male

DRUGS (3)
  1. DIOVAN [Suspect]
  2. LOTREL [Suspect]
     Indication: HYPERTENSION
     Dosage: 5/10, QD
     Route: 048
     Dates: start: 20050104, end: 20050208
  3. HYZAAR [Suspect]

REACTIONS (2)
  - COUGH [None]
  - SURGERY [None]
